FAERS Safety Report 16183119 (Version 2)
Quarter: 2019Q2

REPORT INFORMATION
  Report Type: Spontaneous
  Country: CN (occurrence: CN)
  Receive Date: 20190411
  Receipt Date: 20190606
  Transmission Date: 20190711
  Serious: Yes (Other)
  Sender: FDA-Public Use
  Company Number: CN-ROCHE-2292844

PATIENT
  Age: 47 Year
  Sex: Male

DRUGS (15)
  1. FLUOROURACIL. [Suspect]
     Active Substance: FLUOROURACIL
     Indication: METASTASES TO BONE
     Route: 065
     Dates: start: 201605, end: 201609
  2. DOCETAXEL. [Suspect]
     Active Substance: DOCETAXEL
     Indication: RECTAL CANCER
     Route: 065
     Dates: start: 201609, end: 201703
  3. FOLINIC ACID [Suspect]
     Active Substance: LEUCOVORIN
     Indication: METASTASES TO BONE
  4. CYCLOPHOSPHAMIDE. [Suspect]
     Active Substance: CYCLOPHOSPHAMIDE
     Indication: METASTASES TO BONE
     Route: 065
     Dates: start: 201609, end: 201703
  5. CYCLOPHOSPHAMIDE. [Suspect]
     Active Substance: CYCLOPHOSPHAMIDE
     Indication: RECTAL CANCER
     Route: 065
     Dates: start: 201703, end: 201705
  6. BEVACIZUMAB. [Suspect]
     Active Substance: BEVACIZUMAB
     Indication: METASTASES TO BONE
     Route: 065
     Dates: start: 201609, end: 201703
  7. OXALIPLATIN. [Suspect]
     Active Substance: OXALIPLATIN
     Indication: RECTAL CANCER
     Route: 065
     Dates: start: 201605, end: 201609
  8. BEVACIZUMAB. [Suspect]
     Active Substance: BEVACIZUMAB
     Indication: RECTAL CANCER
     Route: 065
     Dates: start: 201605, end: 201609
  9. FOLINIC ACID [Suspect]
     Active Substance: LEUCOVORIN
     Indication: RECTAL CANCER
     Route: 065
     Dates: start: 201605, end: 201609
  10. FLUOROURACIL. [Suspect]
     Active Substance: FLUOROURACIL
     Indication: RECTAL CANCER
     Route: 065
     Dates: start: 201703, end: 201705
  11. DOCETAXEL. [Suspect]
     Active Substance: DOCETAXEL
     Indication: METASTASES TO BONE
     Route: 065
     Dates: start: 201703, end: 201705
  12. ZOLEDRONATE [Concomitant]
     Active Substance: ZOLEDRONIC ACID
  13. APROVEL [Concomitant]
     Active Substance: IRBESARTAN
  14. BEVACIZUMAB. [Suspect]
     Active Substance: BEVACIZUMAB
     Route: 065
     Dates: start: 201703, end: 201705
  15. OXALIPLATIN. [Suspect]
     Active Substance: OXALIPLATIN
     Indication: METASTASES TO BONE

REACTIONS (6)
  - Bone marrow failure [Unknown]
  - Proteinuria [Unknown]
  - Gastrointestinal disorder [Unknown]
  - Hypertension [Unknown]
  - Neurotoxicity [Unknown]
  - Diarrhoea [Unknown]
